FAERS Safety Report 6929849-8 (Version None)
Quarter: 2010Q3

REPORT INFORMATION
  Report Type: 
  Country: None (occurrence: None)
  Receive Date: 20100813
  Receipt Date: 20100802
  Transmission Date: 20110219
  Serious: Yes (Other)
  Sender: FDA-Public Use
  Company Number: 2009AP003381

PATIENT
  Age: 47 Year
  Sex: Female

DRUGS (2)
  1. TOPIRAMATE [Suspect]
     Indication: HEADACHE
     Dosage: 50 MG;PO;BID
     Route: 048
     Dates: start: 20090529, end: 20090718
  2. FLUOXETINE [Concomitant]

REACTIONS (3)
  - ANXIETY [None]
  - DEPRESSED MOOD [None]
  - SUICIDAL IDEATION [None]
